FAERS Safety Report 8610054-4 (Version None)
Quarter: 2012Q3

REPORT INFORMATION
  Report Type: 
  Country: None (occurrence: None)
  Receive Date: 20120822
  Receipt Date: 20120808
  Transmission Date: 20120928
  Serious: Yes (Death, Hospitalization, Other)
  Sender: FDA-Public Use
  Company Number: US-RANBAXY-2011RR-41278

PATIENT
  Age: 65 Year
  Sex: Male

DRUGS (4)
  1. METRONIDAZOLE [Suspect]
     Indication: EVIDENCE BASED TREATMENT
     Route: 065
  2. FLUCONAZOLE [Suspect]
     Indication: EVIDENCE BASED TREATMENT
     Route: 065
  3. LEVOFLOXACIN [Suspect]
     Indication: EVIDENCE BASED TREATMENT
     Route: 065
  4. VANCOMYCIN [Suspect]
     Indication: EVIDENCE BASED TREATMENT
     Route: 065

REACTIONS (7)
  - MULTI-ORGAN FAILURE [None]
  - RASH [None]
  - RASH MORBILLIFORM [None]
  - DRUG RASH WITH EOSINOPHILIA AND SYSTEMIC SYMPTOMS [None]
  - EOSINOPHILIA [None]
  - METABOLIC ACIDOSIS [None]
  - RASH PRURITIC [None]
